FAERS Safety Report 6766031-1 (Version None)
Quarter: 2010Q2

REPORT INFORMATION
  Report Type: 
  Country: None (occurrence: None)
  Receive Date: 20100611
  Receipt Date: 20100603
  Transmission Date: 20101027
  Serious: Yes (Other)
  Sender: FDA-Public Use
  Company Number: A0864177A

PATIENT
  Age: 52 Year
  Sex: Male
  Weight: 87.3 kg

DRUGS (5)
  1. ZYBAN [Suspect]
     Indication: DRUG USE FOR UNKNOWN INDICATION
     Route: 048
  2. CHANTIX [Suspect]
     Dosage: .5MG UNKNOWN
     Route: 048
  3. IBUPROFEN [Concomitant]
     Dosage: 600MG FOUR TIMES PER DAY
  4. LYRICA [Concomitant]
     Dosage: 75MG THREE TIMES PER DAY
  5. OXYCODONE [Concomitant]
     Dosage: 5MG AS REQUIRED

REACTIONS (2)
  - EMPHYSEMA [None]
  - SUICIDAL IDEATION [None]
